FAERS Safety Report 6297924-X (Version None)
Quarter: 2009Q3

REPORT INFORMATION
  Report Type: 
  Country: None (occurrence: None)
  Receive Date: 20090805
  Receipt Date: 20090802
  Transmission Date: 20100115
  Serious: Yes (Other)
  Sender: FDA-Public Use
  Company Number: A0799261A

PATIENT
  Sex: Male

DRUGS (5)
  1. IMITREX [Suspect]
     Indication: DRUG USE FOR UNKNOWN INDICATION
     Route: 065
     Dates: start: 20090721
  2. GSK AUTOINJECTOR [Suspect]
     Indication: DRUG USE FOR UNKNOWN INDICATION
  3. CORTISONE [Concomitant]
     Indication: DRUG USE FOR UNKNOWN INDICATION
     Route: 065
  4. VERAPAMIL [Concomitant]
     Indication: DRUG USE FOR UNKNOWN INDICATION
     Route: 065
  5. CHAMPIX [Concomitant]
     Indication: DRUG USE FOR UNKNOWN INDICATION
     Route: 065

REACTIONS (6)
  - DRUG INEFFECTIVE [None]
  - HEADACHE [None]
  - PHARYNGEAL DISORDER [None]
  - PHARYNGEAL INFLAMMATION [None]
  - PHARYNGEAL OEDEMA [None]
  - THROAT TIGHTNESS [None]
